FAERS Safety Report 9022512 (Version 3)
Quarter: 2014Q4

REPORT INFORMATION
  Report Type: Spontaneous
  Country: US (occurrence: US)
  Receive Date: 20130118
  Receipt Date: 20141124
  Transmission Date: 20150529
  Serious: Yes (Life-Threatening, Hospitalization)
  Sender: FDA-Public Use
  Company Number: US-BAYER-2013-004495

PATIENT
  Age: 23 Year
  Sex: Female
  Weight: 56.69 kg

DRUGS (6)
  1. IBUPROFEN. [Concomitant]
     Active Substance: IBUPROFEN
     Dosage: UNK
  2. BEYAZ [Suspect]
     Active Substance: DROSPIRENONE\ETHINYL ESTRADIOL\LEVOMEFOLATE CALCIUM
     Indication: CONTRACEPTION
     Dosage: UNK
     Route: 048
     Dates: start: 201003, end: 201111
  3. YAZ [Suspect]
     Active Substance: DROSPIRENONE\ETHINYL ESTRADIOL
     Indication: CONTRACEPTION
     Dosage: UNK
     Route: 048
     Dates: start: 201103, end: 201111
  4. LORAZEPAM. [Concomitant]
     Active Substance: LORAZEPAM
     Dosage: UNK
  5. ATIVAN [Concomitant]
     Active Substance: LORAZEPAM
  6. VEETIDS [Concomitant]
     Active Substance: PENICILLIN V POTASSIUM
     Dosage: UNK

REACTIONS (3)
  - Cerebrovascular accident [Recovering/Resolving]
  - Injury [Recovering/Resolving]
  - Embolic cerebral infarction [Recovering/Resolving]

NARRATIVE: CASE EVENT DATE: 201111
